FAERS Safety Report 5363532-8 (Version None)
Quarter: 2007Q2

REPORT INFORMATION
  Report Type: 
  Country: None (occurrence: None)
  Receive Date: 20070618
  Receipt Date: 20070605
  Transmission Date: 20071010
  Serious: Yes (Life-Threatening)
  Sender: FDA-Public Use
  Company Number: 100#03#2007-02108

PATIENT
  Age: 86 Year
  Sex: Female

DRUGS (9)
  1. CIPROFLOXACIN [Suspect]
     Indication: INFECTION
     Dosage: 500 MG, ORAL
     Route: 048
     Dates: start: 20070511, end: 20070512
  2. ACETYLSALICYLIC ACID (ACETYLSALICYLIC ACID) (ACETYLSALICYLIC ACID) [Concomitant]
  3. DIGOXIN [Concomitant]
  4. FLUOXETINE [Concomitant]
  5. LOPERAMIDE (LOPERAMIDE) (LOPERAMIDE) [Concomitant]
  6. NYSTATIN (NYSTATIN) (NYSTATIN) [Concomitant]
  7. PARACETAMOL (PARACETAMOL) (PARACETAMOL) [Concomitant]
  8. SIMVASTATIN [Concomitant]
  9. ORAL BALANCE (ORAL BALANCE) (ORAL BALANCE) [Concomitant]

REACTIONS (2)
  - LIP SWELLING [None]
  - THROAT TIGHTNESS [None]
